FAERS Safety Report 15901285 (Version 1)
Quarter: 2019Q1

REPORT INFORMATION
  Report Type: Spontaneous
  Country: US (occurrence: US)
  Receive Date: 20190201
  Receipt Date: 20190201
  Transmission Date: 20190417
  Serious: Yes (Other)
  Sender: FDA-Public Use
  Company Number: None

PATIENT
  Age: 16 Year
  Sex: Male
  Weight: 53.1 kg

DRUGS (1)
  1. FANAPT [Suspect]
     Active Substance: ILOPERIDONE
     Indication: AFFECTIVE DISORDER
     Route: 048

REACTIONS (12)
  - Arrhythmia [None]
  - Anaemia [None]
  - Headache [None]
  - Fall [None]
  - Epistaxis [None]
  - Electrolyte imbalance [None]
  - Heart rate decreased [None]
  - Ear congestion [None]
  - Balance disorder [None]
  - Dizziness [None]
  - Pallor [None]
  - Blood glucose increased [None]

NARRATIVE: CASE EVENT DATE: 20190127
